FAERS Safety Report 5097633-9 (Version None)
Quarter: 2006Q3

REPORT INFORMATION
  Report Type: 
  Country: None (occurrence: None)
  Receive Date: 20060901
  Receipt Date: 20060822
  Transmission Date: 20061208
  Serious: Yes (Hospitalization)
  Sender: FDA-Public Use
  Company Number: 2006073793

PATIENT
  Age: 72 Year
  Sex: Male
  Weight: 43 kg

DRUGS (6)
  1. SU-011, 248 (SUNITINIB MALATE) [Suspect]
     Indication: METASTATIC RENAL CELL CARCINOMA
     Dosage: 25 MG (25 MG, INTERVAL: ONCE/DAY), ORAL
     Route: 048
     Dates: start: 20060424, end: 20060607
  2. INSULIN [Concomitant]
  3. KREON (PANCREATIN) [Concomitant]
  4. LEVOTHYROXINE SODIUM [Concomitant]
  5. HYDROCHOROTHIAZIDE (HYDROCHLOROTHIAZIDE) [Concomitant]
  6. PANTOPRAZOLE SODIUM [Concomitant]

REACTIONS (4)
  - ANOREXIA [None]
  - CACHEXIA [None]
  - DIARRHOEA [None]
  - NAUSEA [None]
